FAERS Safety Report 4771369-3 (Version None)
Quarter: 2005Q3

REPORT INFORMATION
  Report Type: 
  Country: None (occurrence: None)
  Receive Date: 20050914
  Receipt Date: 20050831
  Transmission Date: 20060218
  Serious: Yes (Hospitalization)
  Sender: FDA-Public Use
  Company Number: USA050393358

PATIENT
  Age: 64 Year
  Sex: Female

DRUGS (1)
  1. FORTEO [Suspect]
     Indication: OSTEOPOROSIS
     Dosage: 20 UG ONCE DAY
     Dates: start: 20050201

REACTIONS (6)
  - BACK DISORDER [None]
  - DYSSTASIA [None]
  - INCORRECT DOSE ADMINISTERED [None]
  - NAUSEA [None]
  - PAIN IN EXTREMITY [None]
  - PYREXIA [None]
